FAERS Safety Report 18592564 (Version 1)
Quarter: 2020Q4

REPORT INFORMATION
  Report Type: Spontaneous
  Country: US (occurrence: US)
  Receive Date: 20201209
  Receipt Date: 20201209
  Transmission Date: 20210114
  Serious: No
  Sender: FDA-Public Use
  Company Number: US-LUPIN PHARMACEUTICALS INC.-2020-09781

PATIENT
  Age: 26 Year
  Sex: Female

DRUGS (5)
  1. VANCOMYCIN HYDROCHLORIDE. [Suspect]
     Active Substance: VANCOMYCIN HYDROCHLORIDE
     Indication: EVIDENCE BASED TREATMENT
     Dosage: 1000 MILLIGRAM, BID
     Route: 042
     Dates: start: 2020, end: 2020
  2. CEFEPIME [Suspect]
     Active Substance: CEFEPIME HYDROCHLORIDE
     Indication: EVIDENCE BASED TREATMENT
     Dosage: 2 GRAM, TID
     Route: 042
     Dates: start: 2020, end: 2020
  3. CEFAZOLINE [Suspect]
     Active Substance: CEFAZOLIN SODIUM
     Indication: STAPHYLOCOCCAL BACTERAEMIA
     Dosage: 2 GRAM, TID,ON DISCHARGED, GIVEN THROUGH A PERIPHERALLY INSERTED CENTRAL CATHETER
     Route: 042
     Dates: start: 2020, end: 2020
  4. CEFAZOLINE [Suspect]
     Active Substance: CEFAZOLIN SODIUM
     Indication: SEPTIC ARTHRITIS STAPHYLOCOCCAL
  5. BUPRENORPHINE. [Suspect]
     Active Substance: BUPRENORPHINE
     Indication: DRUG WITHDRAWAL MAINTENANCE THERAPY
     Dosage: UNK
     Route: 065

REACTIONS (1)
  - Maternal exposure during pregnancy [Unknown]
